FAERS Safety Report 13388198 (Version 1)
Quarter: 2017Q1

REPORT INFORMATION
  Report Type: Report from Study
  Country: US (occurrence: US)
  Receive Date: 20170330
  Receipt Date: 20170330
  Transmission Date: 20170429
  Serious: Yes (Hospitalization)
  Sender: FDA-Public Use
  Company Number: PHHO2017US005491

PATIENT
  Age: 68 Year

DRUGS (8)
  1. LISINOPRIL. [Suspect]
     Active Substance: LISINOPRIL
     Indication: HYPERTENSION
     Dosage: 10 MG, UNK
     Route: 065
     Dates: start: 20170228
  2. BLINDED PLACEBO [Suspect]
     Active Substance: INVESTIGATIONAL PRODUCT
     Indication: IMMUNISATION
     Dosage: .5 ML
     Route: 030
     Dates: start: 20160814, end: 20160814
  3. BLINDED PLACEBO [Suspect]
     Active Substance: INVESTIGATIONAL PRODUCT
     Dosage: .5 ML
     Route: 030
     Dates: start: 20160907, end: 20160907
  4. HYDROCHLOROTHIAZIDE. [Concomitant]
     Active Substance: HYDROCHLOROTHIAZIDE
     Indication: HYPERTENSION
     Dosage: 12.5 MG, UNK
     Route: 065
     Dates: start: 20170228
  5. BLINDED FCC H5N1 TURKEY [Suspect]
     Active Substance: INFLUENZA VIRUS VACCINE
     Indication: IMMUNISATION
     Dosage: .5 ML
     Route: 030
     Dates: start: 20160814, end: 20160814
  6. BLINDED NO VACCINATION RECEIVED [Suspect]
     Active Substance: UNSPECIFIED INGREDIENT
     Indication: IMMUNISATION
     Dosage: .5 ML
     Route: 030
     Dates: start: 20160814, end: 20160814
  7. BLINDED NO VACCINATION RECEIVED [Suspect]
     Active Substance: UNSPECIFIED INGREDIENT
     Dosage: .5 ML
     Route: 030
     Dates: start: 20160907, end: 20160907
  8. BLINDED FCC H5N1 TURKEY [Suspect]
     Active Substance: INFLUENZA VIRUS VACCINE
     Dosage: .5 ML
     Route: 030
     Dates: start: 20160907, end: 20160907

REACTIONS (1)
  - Syncope [Recovered/Resolved]

NARRATIVE: CASE EVENT DATE: 20170227
